FAERS Safety Report 8417257-2 (Version None)
Quarter: 2012Q2

REPORT INFORMATION
  Report Type: 
  Country: None (occurrence: None)
  Receive Date: 20120606
  Receipt Date: 20120604
  Transmission Date: 20120825
  Serious: Yes (Death)
  Sender: FDA-Public Use
  Company Number: US-PFIZER INC-2012102251

PATIENT
  Sex: Male

DRUGS (9)
  1. REVATIO [Suspect]
     Dosage: 40 MG, 3X/DAY
     Route: 048
     Dates: start: 20100701
  2. SIMVASTATIN [Concomitant]
     Dosage: 20 MG, UNK
  3. POTASSIUM CHLORIDE [Concomitant]
     Dosage: 20 MEQ, UNK
  4. REVATIO [Suspect]
     Indication: PULMONARY HYPERTENSION
     Dosage: 20 MG, 3X/DAY
     Dates: start: 20110323
  5. ENALAPRIL [Concomitant]
     Dosage: 20 MG, UNK
  6. METOLAZONE [Concomitant]
     Dosage: 2.5 MG, UNK
  7. BUMETANIDE [Concomitant]
     Dosage: 2 MG, UNK
  8. TRACLEER [Concomitant]
     Indication: PULMONARY ARTERIAL HYPERTENSION
     Dosage: UNK, 2X/DAY (125 UNSPECIFIED UNITS)
  9. ALLOPURINOL [Concomitant]
     Dosage: 300 MG, UNK

REACTIONS (1)
  - PULMONARY HYPERTENSION [None]
